FAERS Safety Report 6428643-4 (Version None)
Quarter: 2009Q4

REPORT INFORMATION
  Report Type: 
  Country: None (occurrence: None)
  Receive Date: 20091104
  Receipt Date: 20091104
  Transmission Date: 20100525
  Serious: Yes (Hospitalization)
  Sender: FDA-Public Use
  Company Number: None

PATIENT
  Age: 83 Year
  Sex: Male
  Weight: 84 kg

DRUGS (1)
  1. MEPERIDINE HCL [Suspect]
     Indication: SURGERY
     Dosage: 50 MG ONCE IV
     Route: 042
     Dates: start: 20090408, end: 20090408

REACTIONS (1)
  - RESPIRATORY DEPRESSION [None]
